FAERS Safety Report 6639051-5 (Version None)
Quarter: 2010Q1

REPORT INFORMATION
  Report Type: 
  Country: None (occurrence: None)
  Receive Date: 20100312
  Receipt Date: 20100301
  Transmission Date: 20100710
  Serious: Yes (Hospitalization)
  Sender: FDA-Public Use
  Company Number: DSA_42703_2010

PATIENT
  Age: 23 Year
  Sex: Female

DRUGS (5)
  1. BUPROPION HCL [Suspect]
     Indication: APATHY
     Dosage: 150 MG   QD), (150 MG BID), (UP TO 8 - 150 MG TABLETS CRUSHED AND INSUFFLATED  NASAL)
     Route: 045
     Dates: end: 20080101
  2. BUPROPION HCL [Suspect]
     Indication: ASTHENIA
     Dosage: 150 MG   QD), (150 MG BID), (UP TO 8 - 150 MG TABLETS CRUSHED AND INSUFFLATED  NASAL)
     Route: 045
     Dates: end: 20080101
  3. BUPROPION HCL [Suspect]
     Indication: APATHY
     Dosage: 150 MG   QD), (150 MG BID), (UP TO 8 - 150 MG TABLETS CRUSHED AND INSUFFLATED  NASAL)
     Route: 045
     Dates: start: 20070101
  4. BUPROPION HCL [Suspect]
     Indication: ASTHENIA
     Dosage: 150 MG   QD), (150 MG BID), (UP TO 8 - 150 MG TABLETS CRUSHED AND INSUFFLATED  NASAL)
     Route: 045
     Dates: start: 20070101
  5. COCAINE (COCAINE) [Suspect]
     Indication: DRUG USE FOR UNKNOWN INDICATION
     Dosage: (DF NASAL)
     Route: 045
     Dates: start: 20060101

REACTIONS (5)
  - AFFECT LABILITY [None]
  - DRUG ABUSE [None]
  - INCORRECT ROUTE OF DRUG ADMINISTRATION [None]
  - PANIC ATTACK [None]
  - RHINALGIA [None]
